FAERS Safety Report 7193541-8 (Version None)
Quarter: 2010Q4

REPORT INFORMATION
  Report Type: 
  Country: None (occurrence: None)
  Receive Date: 20101124
  Receipt Date: 20101001
  Transmission Date: 20110411
  Serious: No
  Sender: FDA-Public Use
  Company Number: 018525

PATIENT
  Sex: Female
  Weight: 63.5 kg

DRUGS (4)
  1. LACOSAMIDE [Suspect]
     Indication: CONVULSION
     Dosage: (100 MG BID ORAL) ; (100 MG QD ORAL)
     Route: 048
     Dates: start: 20100729, end: 20100901
  2. KEPPRA [Suspect]
     Indication: CONVULSION
     Dosage: SEE IMAGE
     Route: 048
     Dates: start: 20100101
  3. KEPPRA [Suspect]
     Indication: CONVULSION
     Dosage: SEE IMAGE
     Route: 048
     Dates: start: 20100728
  4. FOLIC ACID [Concomitant]

REACTIONS (4)
  - DIZZINESS [None]
  - FATIGUE [None]
  - GAIT DISTURBANCE [None]
  - WRONG TECHNIQUE IN DRUG USAGE PROCESS [None]
